FAERS Safety Report 6748400-9 (Version None)
Quarter: 2010Q2

REPORT INFORMATION
  Report Type: 
  Country: None (occurrence: None)
  Receive Date: 20100601
  Receipt Date: 20100301
  Transmission Date: 20101027
  Serious: Yes (Other)
  Sender: FDA-Public Use
  Company Number: US-ASTRAZENECA-2009UW20979

PATIENT
  Sex: Male

DRUGS (9)
  1. SEROQUEL [Suspect]
     Dosage: 25 MG 2-4 TABLETS
     Route: 048
     Dates: start: 20070516
  2. DEPAKOTE [Concomitant]
     Dosage: 500MG ONE TABLET
     Dates: start: 20060117
  3. LISINOPRIL [Concomitant]
     Dosage: 10 TO 20 MG TABLET
     Dates: start: 20080818
  4. DIPHENHYDRAMINE HYDROCHLORIDE [Concomitant]
     Dosage: 50 MG ONE CAPSULE
     Dates: start: 20080818
  5. BUSPIRONE HCL [Concomitant]
     Dosage: 15MG ONE TABLET
     Dates: start: 20080904
  6. HYDROCHLOROTHIAZIDE [Concomitant]
     Dosage: TAKE ONE TABLET
     Dates: start: 20080904
  7. ALPRAZOLAM [Concomitant]
     Dosage: 1 MG ONE TABLET
     Dates: start: 20080911
  8. DIAZEPAM [Concomitant]
     Dosage: 10MG ONE TABLET
     Dates: start: 20080820
  9. ASPIRIN [Concomitant]
     Dosage: 81 MG TAKE ONE TABLET
     Dates: start: 20080904

REACTIONS (3)
  - DIABETES MELLITUS [None]
  - KETOACIDOSIS [None]
  - PANCREATITIS [None]
